FAERS Safety Report 8045319-0 (Version None)
Quarter: 2012Q1

REPORT INFORMATION
  Report Type: 
  Country: None (occurrence: None)
  Receive Date: 20120113
  Receipt Date: 20120111
  Transmission Date: 20120608
  Serious: Yes (Death)
  Sender: FDA-Public Use
  Company Number: US-MEDIMMUNE-MEDI-0013908

PATIENT
  Sex: Female

DRUGS (5)
  1. OXYGEN [Concomitant]
  2. PREVACID [Concomitant]
  3. CORTICOSTEROIDS [Concomitant]
     Dates: start: 20111020, end: 20111026
  4. POLYVISOL [Concomitant]
  5. SYNAGIS [Suspect]
     Dates: start: 20111104, end: 20111104

REACTIONS (1)
  - DEATH [None]
